FAERS Safety Report 12988664 (Version 1)
Quarter: 2016Q4

REPORT INFORMATION
  Report Type: Spontaneous
  Country: GR (occurrence: GR)
  Receive Date: 20161130
  Receipt Date: 20161130
  Transmission Date: 20170207
  Serious: Yes (Other)
  Sender: FDA-Public Use
  Company Number: GR-GILEAD-2016-0245578

PATIENT
  Age: 79 Year
  Sex: Male

DRUGS (2)
  1. HARVONI [Suspect]
     Active Substance: LEDIPASVIR\SOFOSBUVIR
     Indication: HEPATITIS C VIRUS TEST POSITIVE
     Dosage: UNK
     Route: 065
  2. RIBAVIRINE [Concomitant]
     Active Substance: RIBAVIRIN
     Dosage: UNK

REACTIONS (1)
  - Transplant rejection [Unknown]
